FAERS Safety Report 14488210 (Version 1)
Quarter: 2018Q1

REPORT INFORMATION
  Report Type: Spontaneous
  Country: US (occurrence: US)
  Receive Date: 20180205
  Receipt Date: 20180205
  Transmission Date: 20180509
  Serious: No
  Sender: FDA-Public Use
  Company Number: US-CELGENEUS-USA-20180111177

PATIENT
  Sex: Male

DRUGS (1)
  1. IDHIFA [Suspect]
     Active Substance: ENASIDENIB MESYLATE
     Indication: CHRONIC MYELOID LEUKAEMIA
     Dosage: 100 MILLIGRAM
     Route: 048
     Dates: start: 20171229

REACTIONS (2)
  - Decreased appetite [Unknown]
  - Joint swelling [Unknown]
